FAERS Safety Report 10249797 (Version 1)
Quarter: 2014Q2

REPORT INFORMATION
  Report Type: Spontaneous
  Country: DE (occurrence: DE)
  Receive Date: 20140620
  Receipt Date: 20140620
  Transmission Date: 20141212
  Serious: Yes (Hospitalization)
  Sender: FDA-Public Use
  Company Number: DE-WATSON-2014-12976

PATIENT
  Age: 27 Year
  Sex: Male

DRUGS (10)
  1. SERTRALINE (UNKNOWN) [Suspect]
     Indication: PRODUCT USED FOR UNKNOWN INDICATION
     Dosage: 25 MG, DAILY
     Route: 048
     Dates: start: 20130311, end: 20130315
  2. SERTRALINE (UNKNOWN) [Suspect]
     Dosage: 50 MG, DAILY
     Route: 048
     Dates: start: 20130316, end: 20130319
  3. SERTRALINE (UNKNOWN) [Suspect]
     Dosage: 75 MG, DAILY
     Route: 048
     Dates: start: 20130320, end: 20130322
  4. SERTRALINE (UNKNOWN) [Suspect]
     Dosage: 100 MG, DAILY
     Route: 048
     Dates: start: 20130323, end: 20130329
  5. SERTRALINE (UNKNOWN) [Suspect]
     Dosage: 125 MG, DAILY
     Route: 048
     Dates: start: 20130330, end: 20130403
  6. SERTRALINE (UNKNOWN) [Suspect]
     Dosage: 150 MG, DAILY
     Route: 048
     Dates: start: 20130404, end: 20130421
  7. SEROQUEL [Concomitant]
     Indication: PRODUCT USED FOR UNKNOWN INDICATION
     Dosage: 50 MG, DAILY
     Route: 048
     Dates: start: 20130212, end: 20130219
  8. SEROQUEL [Concomitant]
     Dosage: 100 MG, DAILY
     Route: 048
     Dates: start: 20130410
  9. L-THYROXIN [Concomitant]
     Indication: PRODUCT USED FOR UNKNOWN INDICATION
     Dosage: 50 UG, DAILY
     Route: 048
  10. VIGANTOLETTEN [Concomitant]
     Indication: PRODUCT USED FOR UNKNOWN INDICATION
     Dosage: 1500 IU, DAILY
     Route: 048

REACTIONS (3)
  - Myalgia [Recovering/Resolving]
  - Fatigue [Recovering/Resolving]
  - Blood creatine phosphokinase increased [Recovering/Resolving]
